FAERS Safety Report 18021975 (Version 4)
Quarter: 2020Q3

REPORT INFORMATION
  Report Type: Report from Study
  Country: GR (occurrence: GR)
  Receive Date: 20200714
  Receipt Date: 20200916
  Transmission Date: 20201103
  Serious: Yes (Other)
  Sender: FDA-Public Use
  Company Number: NVSC2020GR174346

PATIENT
  Age: 41 Year
  Sex: Male
  Weight: 73 kg

DRUGS (7)
  1. BACLOFEN. [Concomitant]
     Active Substance: BACLOFEN
     Indication: MUSCLE SPASTICITY
     Dosage: 10 MG, BID
     Route: 065
     Dates: start: 20200215
  2. SOLIFENACIN [Concomitant]
     Active Substance: SOLIFENACIN
     Indication: BLADDER DISORDER
     Dosage: 10 MG, QD
     Route: 065
     Dates: start: 20200720
  3. BAF312 [Suspect]
     Active Substance: SIPONIMOD
     Indication: SECONDARY PROGRESSIVE MULTIPLE SCLEROSIS
     Dosage: 2 MG
     Route: 048
     Dates: start: 20200123, end: 20200609
  4. BAF312 [Suspect]
     Active Substance: SIPONIMOD
     Dosage: 2 MG
     Route: 048
     Dates: start: 20200716
  5. BAF312 [Suspect]
     Active Substance: SIPONIMOD
     Dosage: 2 MG
     Route: 048
     Dates: start: 20200719
  6. PANTOPRAZOLE [Concomitant]
     Active Substance: PANTOPRAZOLE
     Indication: GASTRIC DISORDER
     Dosage: 40 MG, QD
     Route: 065
     Dates: start: 201911
  7. IBUPROFEN. [Concomitant]
     Active Substance: IBUPROFEN
     Indication: PAIN
     Dosage: 600 MG, QD
     Route: 065

REACTIONS (5)
  - Oesophagitis [Unknown]
  - Diarrhoea [Recovered/Resolved]
  - Colitis microscopic [Unknown]
  - Adenoma benign [Unknown]
  - Gastritis [Unknown]

NARRATIVE: CASE EVENT DATE: 202004
